FAERS Safety Report 9186737 (Version 1)
Quarter: 2013Q1

REPORT INFORMATION
  Report Type: Spontaneous
  Country: US (occurrence: US)
  Receive Date: 20130325
  Receipt Date: 20130325
  Transmission Date: 20140127
  Serious: No
  Sender: FDA-Public Use
  Company Number: US-BAYER-2013-033053

PATIENT
  Age: 40 Year
  Sex: Female
  Weight: 54.42 kg

DRUGS (11)
  1. BETASERON [Suspect]
     Dosage: 0.25 MG, QOD
     Route: 058
     Dates: start: 2001
  2. ATENOLOL [Concomitant]
     Dosage: 50 MG, UNK
     Route: 048
  3. HYDROCHLOROTHIAZIDE [Concomitant]
     Dosage: 25 MG, UNK
     Route: 048
  4. OXYBUTYNIN [Concomitant]
     Dosage: 5 MG, UNK
     Route: 048
  5. AVIANE [Concomitant]
     Route: 048
  6. SIMVASTATIN [Concomitant]
     Dosage: 20 MG, UNK
     Route: 048
  7. ONE-A-DAY WOMENS VITACRAVES GUMMIES [Concomitant]
     Route: 048
  8. CALCIUM +VIT D [Concomitant]
     Dosage: 600 UNK, UNK
     Route: 048
  9. BACLOFEN [Concomitant]
     Dosage: 10 MG, UNK
     Route: 048
  10. DIVALPROEX [Concomitant]
     Dosage: 500 MG, UNK
  11. VITAMIN D3 [Concomitant]
     Dosage: 1000 UNK, UNK
     Route: 048

REACTIONS (1)
  - Muscle spasms [Unknown]
